FAERS Safety Report 6642990-2 (Version None)
Quarter: 2010Q1

REPORT INFORMATION
  Report Type: 
  Country: None (occurrence: None)
  Receive Date: 20100319
  Receipt Date: 20100314
  Transmission Date: 20100710
  Serious: Yes (Life-Threatening, Other)
  Sender: FDA-Public Use
  Company Number: A0850756A

PATIENT
  Age: 18 Year
  Sex: Male

DRUGS (1)
  1. BIOVIR [Suspect]
     Indication: HIV INFECTION

REACTIONS (1)
  - SUICIDE ATTEMPT [None]
